FAERS Safety Report 20465713 (Version 1)
Quarter: 2022Q1

REPORT INFORMATION
  Report Type: Spontaneous
  Country: US (occurrence: US)
  Receive Date: 20220212
  Receipt Date: 20220212
  Transmission Date: 20220424
  Serious: No
  Sender: FDA-Public Use
  Company Number: US-UNITED THERAPEUTICS-UNT-2022-003107

PATIENT
  Age: 42 Year
  Sex: Male
  Weight: 149.66 kg

DRUGS (3)
  1. REMODULIN [Suspect]
     Active Substance: TREPROSTINIL
     Indication: Pulmonary arterial hypertension
     Dosage: UNK UNK, CONTINUING
     Route: 058
     Dates: start: 20210715
  2. REMODULIN [Suspect]
     Active Substance: TREPROSTINIL
     Dosage: 0.055 ?G/KG, CONTINUING
     Route: 058
  3. ELIQUIS [Concomitant]
     Active Substance: APIXABAN
     Indication: Product used for unknown indication
     Dosage: UNK
     Route: 065

REACTIONS (7)
  - Infusion site haemorrhage [Unknown]
  - Infusion site pain [Unknown]
  - Infusion site discharge [Unknown]
  - Weight decreased [Unknown]
  - Nausea [Unknown]
  - Therapeutic response decreased [Unknown]
  - Device kink [Unknown]

NARRATIVE: CASE EVENT DATE: 20220203
